FAERS Safety Report 9768294 (Version 6)
Quarter: 2014Q1

REPORT INFORMATION
  Report Type: Report from Study
  Country: BE (occurrence: BE)
  Receive Date: 20131217
  Receipt Date: 20140312
  Transmission Date: 20141002
  Serious: Yes (Life-Threatening, Hospitalization)
  Sender: FDA-Public Use
  Company Number: BE-B.I. PHARMACEUTICALS,INC./RIDGEFIELD-2013-BI-41264II

PATIENT
  Age: 56 Year
  Sex: Male

DRUGS (1)
  1. BIBW 2992 [Suspect]
     Indication: SQUAMOUS CELL CARCINOMA OF HEAD AND NECK
     Dosage: 40 MG
     Route: 048
     Dates: start: 20131107, end: 20131120

REACTIONS (3)
  - Intestinal ischaemia [Recovered/Resolved]
  - Sepsis [Recovered/Resolved]
  - Gastrointestinal necrosis [Recovered/Resolved]
